FAERS Safety Report 7788702-0 (Version None)
Quarter: 2011Q3

REPORT INFORMATION
  Report Type: 
  Country: None (occurrence: None)
  Receive Date: 20110928
  Receipt Date: 20110916
  Transmission Date: 20111222
  Serious: Yes (Disabling)
  Sender: FDA-Public Use
  Company Number: GB-ACCORD-010697

PATIENT
  Age: 46 Year

DRUGS (2)
  1. TOPIRAMATE [Suspect]
     Indication: HEADACHE
     Dosage: 25.00-MG/ORAL
     Route: 048
     Dates: start: 20110721
  2. FROVATRIPTAN (FROVATRIPTAN) [Concomitant]

REACTIONS (1)
  - DYSPNOEA EXERTIONAL [None]
